FAERS Safety Report 4661100-4 (Version None)
Quarter: 2005Q2

REPORT INFORMATION
  Report Type: 
  Country: None (occurrence: None)
  Receive Date: 20050511
  Receipt Date: 20050428
  Transmission Date: 20051028
  Serious: Yes (Hospitalization)
  Sender: FDA-Public Use
  Company Number: 2005066893

PATIENT
  Age: 70 Year
  Sex: Female
  Weight: 62.4 kg

DRUGS (25)
  1. IRINOTECAN HCL [Suspect]
     Indication: NON-SMALL CELL LUNG CANCER
     Dosage: 152 MG (INTERMITTENT), INTRAVENOUS
     Route: 042
     Dates: start: 20050201, end: 20050322
  2. GEMCITABINE HYDROCHLORIDE (GEMCITABINE HYDROCHLORIDE) [Suspect]
     Indication: NON-SMALL CELL LUNG CANCER
     Dosage: 1520 MG (INTERMITTENT), INTRAVENOUS
     Route: 042
     Dates: start: 20050201, end: 20050322
  3. LOSARTAN POTASSIUM [Concomitant]
  4. TRICHLORMETHIAZIDE [Concomitant]
  5. GLICLAZIDE (GLICLAZIDE) [Concomitant]
  6. ACARBOSE (ACARBOSE) [Concomitant]
  7. ATORVASTATIN CALCIUM [Concomitant]
  8. BUTENAFINE (BUTENAFINE) [Concomitant]
  9. ROHTO (BORIC ACID, EPHEDRINE HYDROCHLORIDE, MAFENIDE HYDROCHLORIDE, TA [Concomitant]
  10. METFORMIN HCL [Concomitant]
  11. SODIUM CHLORIDE 0.9% [Concomitant]
  12. RINGER-LACTATE SOLUTION (CALCIUM CHLORIDE DIHYDRATE,POTASSIUM CHLORIDE [Concomitant]
  13. SOLUTIONS AFFECTING THE ELECTROLYTE BALANCE (SOLUTIONS AFFECTING THE E [Concomitant]
  14. SODIUM CHLORIDE 0.9% [Concomitant]
  15. ASPARTATE POTASSIUM (ASPARTATE POTASSIUM) [Concomitant]
  16. ENSURE (AMINO ACIDS NOS, MINERALS NOS, VITAMINS NOS) [Concomitant]
  17. LOXOPROFEN SODIUM (LOXOPROFEN SODIUM) [Concomitant]
  18. DICLOFENAC SODIUM [Concomitant]
  19. KETOPROFEN [Concomitant]
  20. POVIDONE IODINE [Concomitant]
  21. LOPERAMIDE HYDROCHLORIDE [Concomitant]
  22. OSELTAMIVIR (OSELTAMIVIR) [Concomitant]
  23. GLUCOSE ( GLUCOSE) [Concomitant]
  24. SOLITA T (ELECTROLYTES NOS) [Concomitant]
  25. HERBAL PREPARATION (HERBAL PREPARATION) [Concomitant]

REACTIONS (7)
  - ANOREXIA [None]
  - BLOOD LACTATE DEHYDROGENASE INCREASED [None]
  - CREPITATIONS [None]
  - DIARRHOEA [None]
  - INTERSTITIAL LUNG DISEASE [None]
  - NAUSEA [None]
  - VOMITING [None]
